FAERS Safety Report 7438609-3 (Version None)
Quarter: 2011Q2

REPORT INFORMATION
  Report Type: 
  Country: None (occurrence: None)
  Receive Date: 20110426
  Receipt Date: 20110421
  Transmission Date: 20111010
  Serious: Yes (Hospitalization, Other)
  Sender: FDA-Public Use
  Company Number: IT-PFIZER INC-2009316338

PATIENT
  Age: 66 Year
  Sex: Female

DRUGS (6)
  1. CYMBALTA [Suspect]
     Indication: DEPRESSION
     Dosage: 540 MG, SINGLE (NINE 60 MG TABLETS)
     Route: 048
  2. GABAPENTIN [Concomitant]
  3. CLONAZEPAM [Suspect]
     Indication: DEPRESSION
     Dosage: 0.125 MG, DROPS
     Route: 048
  4. SERTRALINE HYDROCHLORIDE [Suspect]
     Indication: DEPRESSION
     Dosage: OVERDOSE AMOUNT OF 50 MG TABLETS
     Route: 048
  5. TRAZODONE HCL [Suspect]
     Dosage: 675 MG, SINGLE (NINE 75 MG TABLETS)
     Route: 048
  6. VENLAFAXINE HCL [Suspect]
     Indication: DEPRESSION
     Dosage: 75 MG, UNKNOWN NUMBER OF TABLETS
     Route: 048

REACTIONS (13)
  - DISORIENTATION [None]
  - DRUG ABUSE [None]
  - ELECTROLYTE IMBALANCE [None]
  - SUICIDE ATTEMPT [None]
  - SOMNOLENCE [None]
  - SINUS BRADYCARDIA [None]
  - ELECTROCARDIOGRAM QT PROLONGED [None]
  - SPEECH DISORDER [None]
  - INTENTIONAL OVERDOSE [None]
  - LEUKOCYTOSIS [None]
  - CONFUSIONAL STATE [None]
  - AGITATION [None]
  - HYPOTENSION [None]
